FAERS Safety Report 6783261-3 (Version None)
Quarter: 2010Q2

REPORT INFORMATION
  Report Type: 
  Country: None (occurrence: None)
  Receive Date: 20100622
  Receipt Date: 20100611
  Transmission Date: 20101027
  Serious: Yes (Other)
  Sender: FDA-Public Use
  Company Number: US-NOVOPROD-310102

PATIENT
  Sex: Female

DRUGS (3)
  1. NOVOLOG [Suspect]
     Indication: TYPE 2 DIABETES MELLITUS
     Dosage: UNKNOWN
     Route: 058
  2. LANTUS [Suspect]
     Indication: TYPE 2 DIABETES MELLITUS
     Dosage: 16 U, QD AT NIGHT
     Route: 058
  3. ORAL ANTIDIABETICS [Concomitant]
     Dosage: UNKNOWN

REACTIONS (4)
  - BLOOD GLUCOSE INCREASED [None]
  - FEELING ABNORMAL [None]
  - OEDEMA PERIPHERAL [None]
  - RENAL FAILURE [None]
